FAERS Safety Report 5113660-7 (Version None)
Quarter: 2006Q3

REPORT INFORMATION
  Report Type: 
  Country: None (occurrence: None)
  Receive Date: 20060921
  Receipt Date: 20060921
  Transmission Date: 20061208
  Serious: No
  Sender: FDA-Public Use
  Company Number: None

PATIENT
  Sex: Male

DRUGS (12)
  1. TENOFOVIR [Suspect]
     Indication: ACQUIRED IMMUNODEFICIENCY SYNDROME
     Dosage: 300 MG PO DAILY
     Route: 048
  2. TENOFOVIR [Suspect]
     Indication: HIV INFECTION
     Dosage: 300 MG PO DAILY
     Route: 048
  3. ATAZANAVIR [Concomitant]
  4. RITONAVIR [Concomitant]
  5. DIDANOSINE [Concomitant]
  6. GLIPIZIDE ER [Concomitant]
  7. QUETIAPINE [Concomitant]
  8. CARVEDILOL [Concomitant]
  9. SPIRONOLACTONE [Concomitant]
  10. ASPIRIN [Concomitant]
  11. ENALAPRIL SL [Concomitant]
  12. NITROGLYCERIN [Concomitant]

REACTIONS (5)
  - BLOOD CREATININE INCREASED [None]
  - BLOOD PHOSPHORUS ABNORMAL [None]
  - GLUCOSE URINE [None]
  - PO2 DECREASED [None]
  - RENAL IMPAIRMENT [None]
